FAERS Safety Report 6659245-2 (Version None)
Quarter: 2010Q1

REPORT INFORMATION
  Report Type: 
  Country: None (occurrence: None)
  Receive Date: 20100330
  Receipt Date: 20100318
  Transmission Date: 20100710
  Serious: No
  Sender: FDA-Public Use
  Company Number: US-BIOGENIDEC-2010BI009425

PATIENT
  Age: 71 Year
  Sex: Male

DRUGS (3)
  1. TYSABRI [Suspect]
     Indication: MULTIPLE SCLEROSIS
     Route: 042
     Dates: start: 20071108
  2. PRILOSTATIN (PRESUMED PRAVASTATIN) [Concomitant]
  3. ZETIA [Concomitant]

REACTIONS (2)
  - HEPATIC ENZYME INCREASED [None]
  - MUSCULAR WEAKNESS [None]
